FAERS Safety Report 5037711-3 (Version None)
Quarter: 2006Q2

REPORT INFORMATION
  Report Type: 
  Country: None (occurrence: None)
  Receive Date: 20060626
  Receipt Date: 20060615
  Transmission Date: 20061013
  Serious: No
  Sender: FDA-Public Use
  Company Number: 2006-05-1377

PATIENT
  Age: 71 Year
  Sex: Male
  Weight: 51 kg

DRUGS (3)
  1. PEG-INTRON [Suspect]
     Indication: HEPATITIS C
     Dosage: 70 MCG QW SUBCUTANEOUS
     Route: 058
     Dates: start: 20060410, end: 20060515
  2. REBETOL [Suspect]
     Indication: HEPATITIS C
     Dosage: 600 MG ORAL
     Route: 048
     Dates: start: 20060410, end: 20060516
  3. TAKA-DIASTASE [Concomitant]

REACTIONS (4)
  - AMNESIA [None]
  - APATHY [None]
  - DEPRESSION [None]
  - MALAISE [None]
